FAERS Safety Report 15963228 (Version 1)
Quarter: 2019Q1

REPORT INFORMATION
  Report Type: Spontaneous
  Country: US (occurrence: US)
  Receive Date: 20190214
  Receipt Date: 20190214
  Transmission Date: 20190417
  Serious: No
  Sender: FDA-Public Use
  Company Number: US-NEXGEN PHARMA, INC.-2062686

PATIENT
  Sex: Female

DRUGS (1)
  1. CHENODAL [Suspect]
     Active Substance: CHENODIOL
     Indication: LIPIDOSIS
     Route: 048
     Dates: start: 20100611

REACTIONS (3)
  - Vulvovaginal pruritus [Not Recovered/Not Resolved]
  - Fungal infection [None]
  - Vaginal odour [Not Recovered/Not Resolved]
